FAERS Safety Report 6392796-7 (Version None)
Quarter: 2009Q4

REPORT INFORMATION
  Report Type: 
  Country: None (occurrence: None)
  Receive Date: 20091007
  Receipt Date: 20090820
  Transmission Date: 20100525
  Serious: No
  Sender: FDA-Public Use
  Company Number: US-ALLERGAN-0911642US

PATIENT
  Age: 75 Year
  Sex: Female

DRUGS (3)
  1. LATISSE [Suspect]
     Indication: GROWTH OF EYELASHES
     Dosage: 1 GTT, QPM
     Route: 061
     Dates: start: 20090803, end: 20090819
  2. VITAMIN [Concomitant]
  3. FELDENE [Concomitant]

REACTIONS (1)
  - OCULAR HYPERAEMIA [None]
